FAERS Safety Report 5975442-3 (Version None)
Quarter: 2008Q4

REPORT INFORMATION
  Report Type: 
  Country: None (occurrence: None)
  Receive Date: 20081202
  Receipt Date: 20080625
  Transmission Date: 20090506
  Serious: Yes (Hospitalization)
  Sender: FDA-Public Use
  Company Number: US-AMGEN-QUU257096

PATIENT
  Sex: Female
  Weight: 88.5 kg

DRUGS (2)
  1. ENBREL [Suspect]
     Indication: PSORIATIC ARTHROPATHY
     Route: 058
     Dates: start: 20000713
  2. ENBREL [Suspect]
     Indication: PSORIASIS

REACTIONS (3)
  - INFLUENZA [None]
  - INJECTION SITE PAIN [None]
  - PNEUMONIA [None]
